FAERS Safety Report 7916579-9 (Version None)
Quarter: 2011Q4

REPORT INFORMATION
  Report Type: 
  Country: None (occurrence: None)
  Receive Date: 20111114
  Receipt Date: 20111031
  Transmission Date: 20120403
  Serious: Yes (Death)
  Sender: FDA-Public Use
  Company Number: UTC-011806

PATIENT
  Age: 58 Year
  Sex: Female
  Weight: 76.8 kg

DRUGS (4)
  1. REVATIO [Concomitant]
  2. TRACLEER [Concomitant]
  3. REMODULIN [Suspect]
     Indication: COR PULMONALE CHRONIC
     Dosage: 142.56 UG/KG (0.099 UG/KG,1 IN 1 MIN),INTRAVENOUS
     Route: 042
     Dates: start: 20040427
  4. DIURETICS (DIURETICS) [Concomitant]

REACTIONS (1)
  - DEATH [None]
